FAERS Safety Report 9129909 (Version 2)
Quarter: 2013Q1

REPORT INFORMATION
  Report Type: Spontaneous
  Country: JP (occurrence: JP)
  Receive Date: 20130228
  Receipt Date: 20130314
  Transmission Date: 20140127
  Serious: Yes (Life-Threatening, Other)
  Sender: FDA-Public Use
  Company Number: JP-ABBOTT-13P-087-1055058-00

PATIENT
  Age: 78 Year
  Sex: Male
  Weight: 57 kg

DRUGS (2)
  1. HUMIRA [Suspect]
     Indication: PSORIASIS
     Route: 058
     Dates: start: 20101018, end: 20101018
  2. HUMIRA [Suspect]
     Route: 058
     Dates: start: 20130122

REACTIONS (7)
  - Subarachnoid haemorrhage [Recovering/Resolving]
  - Injury [Recovering/Resolving]
  - Fall [Recovering/Resolving]
  - Pharyngitis [Unknown]
  - Rhinorrhoea [Unknown]
  - Cough [Unknown]
  - Nasopharyngitis [Recovered/Resolved]
